FAERS Safety Report 7679096-X (Version None)
Quarter: 2011Q3

REPORT INFORMATION
  Report Type: 
  Country: None (occurrence: None)
  Receive Date: 20110812
  Receipt Date: 20110801
  Transmission Date: 20111222
  Serious: Yes (Other)
  Sender: FDA-Public Use
  Company Number: US-AMGEN-USASP2011037761

PATIENT
  Age: 55 Year
  Sex: Male

DRUGS (2)
  1. INTERFERON ALPHA 1-A [Concomitant]
  2. NPLATE [Suspect]
     Indication: IDIOPATHIC THROMBOCYTOPENIC PURPURA
     Dates: start: 20100827

REACTIONS (1)
  - BIOPSY BONE MARROW ABNORMAL [None]
